FAERS Safety Report 25580256 (Version 1)
Quarter: 2025Q3

REPORT INFORMATION
  Report Type: Spontaneous
  Country: US (occurrence: US)
  Receive Date: 20250718
  Receipt Date: 20250718
  Transmission Date: 20251021
  Serious: No
  Sender: NOVO NORDISK
  Company Number: US-NOVOPROD-1350259

PATIENT
  Age: 71 Year
  Sex: Male

DRUGS (1)
  1. WEGOVY [Suspect]
     Active Substance: SEMAGLUTIDE
     Indication: Obesity
     Dosage: 1.7 MG, QW( 1.7 EVERY 7 DAYS)
     Route: 058
     Dates: start: 20240601, end: 20241222

REACTIONS (2)
  - Gastrointestinal motility disorder [Recovered/Resolved]
  - Constipation [Recovered/Resolved]

NARRATIVE: CASE EVENT DATE: 20241022
